FAERS Safety Report 5050098-5 (Version None)
Quarter: 2006Q3

REPORT INFORMATION
  Report Type: 
  Country: None (occurrence: None)
  Receive Date: 20060713
  Receipt Date: 20060707
  Transmission Date: 20061208
  Serious: Yes (Other)
  Sender: FDA-Public Use
  Company Number: FR-AVENTIS-200612438FR

PATIENT
  Age: 83 Year
  Sex: Male

DRUGS (1)
  1. ARAVA [Suspect]
     Indication: RHEUMATOID ARTHRITIS
     Route: 048
     Dates: start: 20050101

REACTIONS (1)
  - RENAL CELL CARCINOMA STAGE UNSPECIFIED [None]
